FAERS Safety Report 9426704 (Version 1)
Quarter: 2013Q3

REPORT INFORMATION
  Report Type: Spontaneous
  Country: US (occurrence: US)
  Receive Date: 20130730
  Receipt Date: 20130730
  Transmission Date: 20140515
  Serious: No
  Sender: FDA-Public Use
  Company Number: US-SANOFI-AVENTIS-2012SA072833

PATIENT
  Age: 51 Year
  Sex: Female

DRUGS (2)
  1. AMBIEN [Suspect]
     Indication: INSOMNIA
     Route: 048
     Dates: start: 2007
  2. ZOLPIDEM TARTRATE [Suspect]
     Route: 065

REACTIONS (3)
  - Hormone level abnormal [Unknown]
  - Aggression [Recovered/Resolved]
  - Abnormal sleep-related event [Recovered/Resolved]
